FAERS Safety Report 7385778-X (Version None)
Quarter: 2011Q1

REPORT INFORMATION
  Report Type: 
  Country: None (occurrence: None)
  Receive Date: 20110301
  Receipt Date: 20100624
  Transmission Date: 20110831
  Serious: Yes (Other)
  Sender: FDA-Public Use
  Company Number: 2211100-US-JNJFOC-20100304543

PATIENT
  Age: 55 Year
  Sex: Female

DRUGS (5)
  1. CRESTOR [Concomitant]
  2. NEXIUM [Concomitant]
  3. IBUPROFEN [Suspect]
     Indication: ILL-DEFINED DISORDER
  4. ASPIRIN [Suspect]
     Indication: ILL-DEFINED DISORDER
  5. CHANTIX [Suspect]
     Indication: ILL-DEFINED DISORDER

REACTIONS (2)
  - BLOOD URINE PRESENT [None]
  - RENAL FAILURE [None]
